FAERS Safety Report 4406173-9 (Version None)
Quarter: 2004Q3

REPORT INFORMATION
  Report Type: 
  Country: None (occurrence: None)
  Receive Date: 20040723
  Receipt Date: 20040505
  Transmission Date: 20050211
  Serious: No
  Sender: FDA-Public Use
  Company Number: US-GLAXOSMITHKLINE-A0509674A

PATIENT
  Age: 33 Year
  Sex: Female

DRUGS (5)
  1. AVANDIA [Suspect]
     Dosage: 8MG PER DAY
     Route: 048
     Dates: start: 20030501, end: 20040505
  2. PROZAC [Concomitant]
  3. IMITREX [Concomitant]
  4. ACCUPRIL [Concomitant]
  5. ZYBAN [Concomitant]

REACTIONS (1)
  - BLOOD ALBUMIN INCREASED [None]
